FAERS Safety Report 5068074-5 (Version None)
Quarter: 2006Q3

REPORT INFORMATION
  Report Type: 
  Country: None (occurrence: None)
  Receive Date: 20060802
  Receipt Date: 20060731
  Transmission Date: 20061208
  Serious: Yes (Hospitalization)
  Sender: FDA-Public Use
  Company Number: US-SANOFI-SYNTHELABO-F01200601768

PATIENT
  Sex: Female

DRUGS (6)
  1. ALBUTEROL SPIROS [Concomitant]
  2. RAMIPRIL [Concomitant]
  3. AMBIEN [Concomitant]
  4. FLUOROURACIL [Suspect]
  5. AVASTIN [Suspect]
  6. OXALIPLATIN [Suspect]
     Indication: RECTAL CANCER
     Route: 041

REACTIONS (1)
  - CHOLECYSTITIS ACUTE [None]
